FAERS Safety Report 12586444 (Version 1)
Quarter: 2016Q3

REPORT INFORMATION
  Report Type: Spontaneous
  Country: GB (occurrence: GB)
  Receive Date: 20160725
  Receipt Date: 20160725
  Transmission Date: 20161109
  Serious: Yes (Other)
  Sender: FDA-Public Use
  Company Number: GB-ROCHE-1800232

PATIENT
  Age: 70 Day
  Sex: Male
  Weight: 2.1 kg

DRUGS (7)
  1. ABIDEC [Concomitant]
     Dosage: STARTED ON DAY 35, CONTINUING
     Route: 048
  2. VITAMIN E [Concomitant]
     Active Substance: .ALPHA.-TOCOPHEROL
     Indication: CHOLESTASIS
     Dosage: STARTED DAY 35, CONTINUING
     Route: 048
  3. URSODEOXYCHOLIC ACID [Concomitant]
     Active Substance: URSODIOL
     Indication: CHOLESTASIS
     Dosage: STARTED DAY 35, CONTINUING
     Route: 048
  4. VALGANCICLOVIR. [Suspect]
     Active Substance: VALGANCICLOVIR
     Indication: CYTOMEGALOVIRUS INFECTION
     Route: 048
     Dates: start: 20160527, end: 20160622
  5. SYTRON [Concomitant]
     Indication: ANAEMIA NEONATAL
     Dosage: STARTED DAY 28, CONTINUING
     Route: 048
  6. SODIUM ACID PHOSPHATE [Concomitant]
     Indication: METABOLIC DISORDER
     Dosage: STARTED ON DAY 18, CONTINUING
     Route: 048
  7. VITAMIN K [Concomitant]
     Active Substance: PHYTONADIONE
     Indication: CHOLESTASIS
     Dosage: STARTED DAY 35, CONTINUING
     Route: 048

REACTIONS (1)
  - Hypoglycaemia [Not Recovered/Not Resolved]

NARRATIVE: CASE EVENT DATE: 20160612
